FAERS Safety Report 7962911-X (Version None)
Quarter: 2011Q4

REPORT INFORMATION
  Report Type: 
  Country: None (occurrence: None)
  Receive Date: 20111207
  Receipt Date: 20111130
  Transmission Date: 20120403
  Serious: Yes (Hospitalization)
  Sender: FDA-Public Use
  Company Number: US-ABBOTT-11P-163-0729492-00

PATIENT
  Sex: Male
  Weight: 84.444 kg

DRUGS (14)
  1. METHOTREXATE [Concomitant]
     Indication: PSORIASIS
     Dates: start: 20080101
  2. HYDROCHLOROTHIAZIDE [Concomitant]
     Indication: DIURETIC THERAPY
  3. HUMIRA [Suspect]
     Indication: PSORIASIS
     Route: 058
     Dates: start: 20110102, end: 20110501
  4. TYLENOL W/ CODEINE NO. 3 [Concomitant]
     Indication: ARTHRALGIA
     Dosage: 300/30 MG
  5. CELECOXIB [Concomitant]
     Indication: ARTHRITIS
  6. ALTACE [Concomitant]
     Indication: BLOOD PRESSURE
  7. COUMADIN [Concomitant]
     Indication: CARDIAC DISORDER
  8. OMEPRAZOLE [Concomitant]
     Indication: GASTROOESOPHAGEAL REFLUX DISEASE
  9. HUMIRA [Concomitant]
     Indication: PSORIASIS
     Route: 058
     Dates: start: 20030501
  10. METHOTREXATE [Concomitant]
     Indication: ARTHRITIS
  11. TRILIPIX [Concomitant]
     Indication: BLOOD CHOLESTEROL
     Dates: start: 20110101
  12. FOLIC ACID [Concomitant]
     Indication: ARTHRITIS
  13. VALSARTAN [Concomitant]
     Indication: BLOOD PRESSURE
  14. ATORVASTATIN CALCIUM [Concomitant]
     Indication: BLOOD CHOLESTEROL
     Dates: start: 20110101

REACTIONS (2)
  - WOUND INFECTION [None]
  - STAB WOUND [None]
